FAERS Safety Report 17868280 (Version 2)
Quarter: 2020Q4

REPORT INFORMATION
  Report Type: Spontaneous
  Country: DE (occurrence: DE)
  Receive Date: 20200606
  Receipt Date: 20201013
  Transmission Date: 20210113
  Serious: Yes (Life-Threatening, Hospitalization, Other)
  Sender: FDA-Public Use
  Company Number: DE-SUN PHARMACEUTICAL INDUSTRIES LTD-2020RR-249517

PATIENT
  Age: 91 Year
  Sex: Male

DRUGS (4)
  1. VALPROAT [Suspect]
     Active Substance: VALPROATE SODIUM
     Indication: EPILEPSY
     Dosage: 1000 MILLIGRAM, DAILY
     Route: 048
     Dates: start: 20200510
  2. FENTANYL TTS [Suspect]
     Active Substance: FENTANYL
     Indication: PRODUCT USED FOR UNKNOWN INDICATION
     Dosage: 100 MICROG/HANWENDUNG SCHON LANGER
     Route: 062
  3. PREGABALIN. [Suspect]
     Active Substance: PREGABALIN
     Indication: PRODUCT USED FOR UNKNOWN INDICATION
     Dosage: 300 MILLIGRAMS, DAILY, ANWENDUNG SCHON LANGER
     Route: 048
  4. DIPHENHYDRAMIN [Suspect]
     Active Substance: DIPHENHYDRAMINE
     Indication: SLEEP DISORDER
     Dosage: 50 MILLIGRAMS, DAILY
     Route: 048
     Dates: start: 20200514

REACTIONS (4)
  - Altered state of consciousness [Not Recovered/Not Resolved]
  - Drug interaction [Unknown]
  - Depressed level of consciousness [Not Recovered/Not Resolved]
  - Respiratory depression [Not Recovered/Not Resolved]

NARRATIVE: CASE EVENT DATE: 20200515
